FAERS Safety Report 8695628 (Version 3)
Quarter: 2013Q3

REPORT INFORMATION
  Report Type: Spontaneous
  Country: US (occurrence: US)
  Receive Date: 20120731
  Receipt Date: 20130718
  Transmission Date: 20140515
  Serious: Yes (Other)
  Sender: FDA-Public Use
  Company Number: US-ASTRAZENECA-2012SE49851

PATIENT
  Age: 53 Year
  Sex: Female
  Weight: 90.7 kg

DRUGS (8)
  1. SEROQUEL [Suspect]
     Indication: POST-TRAUMATIC STRESS DISORDER
     Dosage: 400 MG, TWICE AT NIGHT
     Route: 048
     Dates: start: 2005, end: 201306
  2. SEROQUEL [Suspect]
     Indication: TACHYPHRENIA
     Dosage: 400 MG, TWICE AT NIGHT
     Route: 048
     Dates: start: 2005, end: 201306
  3. SEROQUEL [Suspect]
     Indication: SLEEP DISORDER
     Dosage: 400 MG, TWICE AT NIGHT
     Route: 048
     Dates: start: 2005, end: 201306
  4. SEROQUEL [Suspect]
     Indication: POST-TRAUMATIC STRESS DISORDER
     Route: 048
  5. SEROQUEL [Suspect]
     Indication: TACHYPHRENIA
     Route: 048
  6. SEROQUEL [Suspect]
     Indication: SLEEP DISORDER
     Route: 048
  7. SOMA [Concomitant]
     Indication: PAIN
     Dates: start: 2011
  8. VALIUM [Concomitant]
     Indication: POST-TRAUMATIC STRESS DISORDER
     Dates: start: 2003

REACTIONS (8)
  - Intervertebral disc disorder [Unknown]
  - Insomnia [Unknown]
  - Adverse event [Unknown]
  - Tachyphrenia [Unknown]
  - Headache [Unknown]
  - Fatigue [Unknown]
  - Off label use [Unknown]
  - Drug dose omission [Unknown]
